FAERS Safety Report 19672691 (Version 1)
Quarter: 2021Q3

REPORT INFORMATION
  Report Type: Spontaneous
  Country: US (occurrence: US)
  Receive Date: 20210808
  Receipt Date: 20210808
  Transmission Date: 20211014
  Serious: Yes (Hospitalization)
  Sender: FDA-Public Use
  Company Number: US-BEH-2021134484

PATIENT
  Age: 49 Year
  Sex: Female

DRUGS (2)
  1. HIZENTRA [Suspect]
     Active Substance: HUMAN IMMUNOGLOBULIN G
     Indication: MYASTHENIA GRAVIS
     Dosage: 24 GRAM, QW FOR 2 DAYS
     Route: 058
     Dates: start: 202105
  2. HIZENTRA [Suspect]
     Active Substance: HUMAN IMMUNOGLOBULIN G
     Dosage: 1 GRAM, QW, FOR 2 DAYS
     Route: 058
     Dates: start: 202105

REACTIONS (3)
  - Off label use [Unknown]
  - Kidney infection [Unknown]
  - No adverse event [Unknown]

NARRATIVE: CASE EVENT DATE: 202106
